FAERS Safety Report 8883946 (Version 1)
Quarter: 2012Q4

REPORT INFORMATION
  Report Type: 
  Country: US (occurrence: US)
  Receive Date: 20121102
  Receipt Date: 20121102
  Transmission Date: 20130627
  Serious: No
  Sender: FDA-Public Use
  Company Number: US-ASTRAZENECA-2012SE24959

PATIENT
  Age: 33 Year
  Sex: Male
  Weight: 72.6 kg

DRUGS (3)
  1. CRESTOR [Suspect]
     Indication: LOW DENSITY LIPOPROTEIN INCREASED
     Route: 048
     Dates: start: 201203
  2. CRESTOR [Suspect]
     Indication: LOW DENSITY LIPOPROTEIN INCREASED
     Route: 048
  3. WARFARIN [Concomitant]

REACTIONS (7)
  - Eye disorder [Recovered/Resolved]
  - Visual impairment [Recovered/Resolved]
  - Vision blurred [Recovered/Resolved]
  - Vision blurred [Recovered/Resolved]
  - Optic nerve disorder [Unknown]
  - Low density lipoprotein increased [Unknown]
  - Drug ineffective [Unknown]
